FAERS Safety Report 6839126-1 (Version None)
Quarter: 2010Q3

REPORT INFORMATION
  Report Type: 
  Country: None (occurrence: None)
  Receive Date: 20100714
  Receipt Date: 20100702
  Transmission Date: 20110219
  Serious: Yes (Other)
  Sender: FDA-Public Use
  Company Number: US-JNJFOC-20100701643

PATIENT
  Sex: Male

DRUGS (11)
  1. REMICADE [Suspect]
     Indication: RHEUMATOID ARTHRITIS
     Dosage: 3 TOTAL INFUSIONS
     Route: 042
  2. STATINS [Concomitant]
     Indication: BLOOD CHOLESTEROL
     Route: 065
  3. METHOTREXATE [Concomitant]
     Indication: RHEUMATOID ARTHRITIS
     Route: 065
  4. MEDFORMIN [Concomitant]
     Indication: DIABETES MELLITUS
     Route: 065
  5. LOPRESSOR [Concomitant]
     Indication: BLOOD PRESSURE
     Route: 065
  6. FOLIC ACID [Concomitant]
     Indication: PRODUCT USED FOR UNKNOWN INDICATION
     Route: 065
  7. LISINOPRIL [Concomitant]
     Indication: BLOOD PRESSURE
     Route: 065
  8. AMAREL [Concomitant]
     Indication: DIABETES MELLITUS
     Route: 065
  9. VITAMIN TAB [Concomitant]
     Indication: ROUTINE HEALTH MAINTENANCE
     Route: 065
  10. PREDNISONE [Concomitant]
     Route: 065
  11. ACTOS [Concomitant]
     Indication: DIABETES MELLITUS
     Route: 065

REACTIONS (5)
  - ABDOMINAL DISCOMFORT [None]
  - DYSPNOEA [None]
  - GENERAL PHYSICAL HEALTH DETERIORATION [None]
  - MUSCULAR WEAKNESS [None]
  - PHOTOSENSITIVITY REACTION [None]
